FAERS Safety Report 21059675 (Version 1)
Quarter: 2022Q3

REPORT INFORMATION
  Report Type: Spontaneous
  Country: GB (occurrence: ES)
  Receive Date: 20220708
  Receipt Date: 20220708
  Transmission Date: 20221027
  Serious: Yes (Death, Hospitalization, Other)
  Sender: FDA-Public Use
  Company Number: GB-SANOFI-01172278

PATIENT
  Age: 64 Year
  Sex: Male

DRUGS (15)
  1. DOCETAXEL [Suspect]
     Active Substance: DOCETAXEL
     Indication: Non-small cell lung cancer
     Dosage: 63.75 MG/M2, Q3W
     Route: 042
     Dates: start: 20220413
  2. DOCETAXEL [Suspect]
     Active Substance: DOCETAXEL
     Dosage: 56.25 MG/M2, Q3W
     Route: 042
     Dates: start: 20220505
  3. BUDESONIDE [Concomitant]
     Active Substance: BUDESONIDE
     Dosage: UNK
     Dates: start: 20150601
  4. DEXAMETHASONE [Concomitant]
     Active Substance: DEXAMETHASONE
     Dosage: UNK
     Dates: start: 20220422
  5. DOMPERIDONE ACETATE [Concomitant]
     Dosage: UNK
     Dates: start: 20220406
  6. IBUPROFEN [Concomitant]
     Active Substance: IBUPROFEN
     Dosage: UNK
     Dates: start: 20220525
  7. LANSOPRAZOLE [Concomitant]
     Active Substance: LANSOPRAZOLE
     Dosage: UNK
     Dates: start: 20220427
  8. METFORMIN [Concomitant]
     Active Substance: METFORMIN HYDROCHLORIDE
     Dosage: UNK
     Dates: start: 20220526
  9. ACETAMINOPHEN [Concomitant]
     Active Substance: ACETAMINOPHEN
     Dosage: UNK
     Dates: start: 20220406
  10. PAROXETINE [Concomitant]
     Active Substance: PAROXETINE
     Dosage: UNK
     Dates: start: 20220407
  11. RAMIPRIL [Concomitant]
     Active Substance: RAMIPRIL
     Dosage: UNK
     Dates: start: 20180328
  12. SIMVASTATIN [Concomitant]
     Active Substance: SIMVASTATIN
     Dosage: UNK
     Dates: start: 20081010
  13. TINZAPARIN [Concomitant]
     Active Substance: TINZAPARIN
     Dosage: UNK
     Dates: start: 20220527
  14. ACETAMINOPHEN\TRAMADOL [Concomitant]
     Active Substance: ACETAMINOPHEN\TRAMADOL
     Dosage: UNK
     Dates: start: 20220505
  15. METAMIZOLE [METAMIZOLE SODIUM] [Concomitant]
     Dosage: UNK
     Dates: start: 20220526

REACTIONS (9)
  - Upper gastrointestinal haemorrhage [Fatal]
  - Depressed level of consciousness [Unknown]
  - Haematemesis [Unknown]
  - Tachypnoea [Unknown]
  - Tachycardia [Unknown]
  - Oxygen saturation decreased [Unknown]
  - Abdominal pain [Unknown]
  - Anaemia [Unknown]
  - Oesophagitis [Unknown]

NARRATIVE: CASE EVENT DATE: 20220528
